FAERS Safety Report 12877978 (Version 2)
Quarter: 2016Q4

REPORT INFORMATION
  Report Type: Report from Study
  Country: AU (occurrence: AU)
  Receive Date: 20161024
  Receipt Date: 20161107
  Transmission Date: 20170207
  Serious: Yes (Other)
  Sender: FDA-Public Use
  Company Number: AU-TOLMAR, INC.-2016AU010210

PATIENT
  Sex: Male

DRUGS (1)
  1. ELIGARD [Suspect]
     Active Substance: LEUPROLIDE ACETATE
     Indication: PROSTATE CANCER
     Dosage: 45 MG, EVERY SIX MONTH
     Route: 058

REACTIONS (4)
  - Emotional disorder [Not Recovered/Not Resolved]
  - Wound complication [Not Recovered/Not Resolved]
  - Suicidal ideation [Unknown]
  - General physical health deterioration [Not Recovered/Not Resolved]
